FAERS Safety Report 20673116 (Version 3)
Quarter: 2022Q2

REPORT INFORMATION
  Report Type: Report from Study
  Country: US (occurrence: US)
  Receive Date: 20220405
  Receipt Date: 20220504
  Transmission Date: 20220721
  Serious: Yes (Other)
  Sender: FDA-Public Use
  Company Number: US-NOVARTISTESTPH-NVSC2022US077099

PATIENT
  Sex: Male

DRUGS (1)
  1. ZYKADIA [Suspect]
     Active Substance: CERITINIB
     Indication: Product used for unknown indication
     Dosage: 150 MG
     Route: 065
     Dates: start: 20211207

REACTIONS (4)
  - Lung neoplasm malignant [Unknown]
  - Illness [Unknown]
  - Amnesia [Unknown]
  - Memory impairment [Unknown]
